FAERS Safety Report 21010214 (Version 1)
Quarter: 2022Q2

REPORT INFORMATION
  Report Type: Spontaneous
  Country: US (occurrence: US)
  Receive Date: 20220627
  Receipt Date: 20220627
  Transmission Date: 20220721
  Serious: No
  Sender: FDA-Public Use
  Company Number: US-PFIZER INC-202200889007

PATIENT
  Age: 68 Year
  Sex: Male
  Weight: 76.19 kg

DRUGS (10)
  1. PAXLOVID [Suspect]
     Active Substance: NIRMATRELVIR\RITONAVIR
     Indication: Bronchitis chronic
     Dosage: [PF-07321332 300 MG]/[RITONAVIR 100 MG]; 2X/DAY
     Route: 048
     Dates: start: 20220620
  2. ALPRAZOLAM [Concomitant]
     Active Substance: ALPRAZOLAM
     Indication: Anxiety
     Dosage: 2 MG, 3X/DAY
     Dates: start: 1992
  3. ALPRAZOLAM [Concomitant]
     Active Substance: ALPRAZOLAM
     Indication: Stress
  4. ALPRAZOLAM [Concomitant]
     Active Substance: ALPRAZOLAM
     Indication: Post-traumatic stress disorder
  5. LEVOTHYROXINE [Concomitant]
     Active Substance: LEVOTHYROXINE
     Indication: Hypothyroidism
     Dosage: 112 MG, DAILY (BEEN ON IT FOR 10-12-15 YEARS)
  6. FINASTERIDE [Concomitant]
     Active Substance: FINASTERIDE
     Indication: Micturition disorder
     Dosage: 5 MG, DAILY (TAKING 3-4 YEARS NOW)
  7. TAMSULOSIN [Concomitant]
     Active Substance: TAMSULOSIN
     Indication: Micturition disorder
     Dosage: 0.4 MG, 2X/DAY (TAKING 3-4 YEARS NOW)
  8. PROSTATE MAX + [Concomitant]
     Indication: Micturition disorder
     Dosage: 2X/DAY (STARTED 3-4 YEARS AGO)
  9. URINOZINC [Concomitant]
     Indication: Micturition disorder
     Dosage: 2X/DAY (1 IN THE MORNING AND 1 AT NIGHT, STARTED 3-4 YEARS AGO)
  10. GINGER ROOT [ZINGIBER OFFICINALE ROOT] [Concomitant]
     Indication: Micturition disorder
     Dosage: 1X/DAY (3 PILLS ONCE A DAY)
     Dates: start: 202203

REACTIONS (6)
  - Gait disturbance [Unknown]
  - Balance disorder [Unknown]
  - Vertigo [Unknown]
  - Malaise [Unknown]
  - Weight decreased [Unknown]
  - Off label use [Unknown]

NARRATIVE: CASE EVENT DATE: 20220601
